FAERS Safety Report 9351625 (Version 1)
Quarter: 2013Q2

REPORT INFORMATION
  Report Type: Spontaneous
  Country: US (occurrence: US)
  Receive Date: 20130617
  Receipt Date: 20130617
  Transmission Date: 20140414
  Serious: Yes (Other)
  Sender: FDA-Public Use
  Company Number: US-TEVA-412360USA

PATIENT
  Sex: 0

DRUGS (2)
  1. PARAGARD 380A [Suspect]
     Route: 015
  2. AMNESTEEM [Concomitant]

REACTIONS (1)
  - Urosepsis [Unknown]
